FAERS Safety Report 4611223-0 (Version None)
Quarter: 2005Q1

REPORT INFORMATION
  Report Type: 
  Country: None (occurrence: None)
  Receive Date: 20050317
  Receipt Date: 20050304
  Transmission Date: 20050727
  Serious: Yes (Disabling)
  Sender: FDA-Public Use
  Company Number: NSADSS2002024051

PATIENT
  Age: 50 Year
  Sex: Male
  Weight: 55 kg

DRUGS (1)
  1. TAVANIC [Suspect]
     Indication: SINUSITIS
     Route: 049
     Dates: start: 20020313, end: 20020323

REACTIONS (2)
  - ARTHRALGIA [None]
  - CARTILAGE INJURY [None]
